FAERS Safety Report 21794473 (Version 3)
Quarter: 2024Q1

REPORT INFORMATION
  Report Type: Spontaneous
  Country: US (occurrence: US)
  Receive Date: 20221229
  Receipt Date: 20240219
  Transmission Date: 20240409
  Serious: Yes (Other)
  Sender: FDA-Public Use
  Company Number: US-MYLANLABS-2022M1140713

PATIENT
  Age: 8 Year
  Sex: Male

DRUGS (12)
  1. CYCLOSPORINE [Suspect]
     Active Substance: CYCLOSPORINE
     Indication: Skin mass
     Dosage: UNK
     Route: 065
  2. CYCLOSPORINE [Suspect]
     Active Substance: CYCLOSPORINE
     Indication: Hypersensitivity
  3. DAPSONE [Suspect]
     Active Substance: DAPSONE
     Indication: Skin mass
     Dosage: UNK
     Route: 065
  4. DAPSONE [Suspect]
     Active Substance: DAPSONE
     Indication: Hypersensitivity
  5. DEXAMETHASONE [Suspect]
     Active Substance: DEXAMETHASONE
     Indication: Hypersensitivity
     Dosage: UNK
     Route: 048
  6. TACROLIMUS [Suspect]
     Active Substance: TACROLIMUS
     Indication: Hypersensitivity
     Dosage: UNK
     Route: 061
  7. PRIVIGEN [Suspect]
     Active Substance: HUMAN IMMUNOGLOBULIN G
     Indication: Skin mass
     Dosage: UNK
     Route: 042
  8. PRIVIGEN [Suspect]
     Active Substance: HUMAN IMMUNOGLOBULIN G
     Indication: Hypersensitivity
  9. DUPILUMAB [Suspect]
     Active Substance: DUPILUMAB
     Indication: Hypersensitivity
     Dosage: UNK
     Route: 065
  10. CROMOLYN [Suspect]
     Active Substance: CROMOLYN
     Indication: Hypersensitivity
     Dosage: UNK
     Route: 065
  11. INSULIN ASPART [Concomitant]
     Active Substance: INSULIN ASPART
     Indication: Type 1 diabetes mellitus
     Dosage: UNK VIA PUMP
     Route: 065
  12. INSULIN ASPART [Concomitant]
     Active Substance: INSULIN ASPART
     Dosage: UNK; 1.7 UNITS/KG/DAY; VIA PUMP
     Route: 065

REACTIONS (7)
  - Treatment failure [Unknown]
  - Meningitis aseptic [Unknown]
  - Hyperglycaemia [Unknown]
  - Condition aggravated [Unknown]
  - Malaise [Unknown]
  - Vomiting [Unknown]
  - Off label use [Unknown]
